FAERS Safety Report 7406564-8 (Version None)
Quarter: 2011Q2

REPORT INFORMATION
  Report Type: 
  Country: None (occurrence: None)
  Receive Date: 20110411
  Receipt Date: 20110405
  Transmission Date: 20111010
  Serious: Yes (Hospitalization)
  Sender: FDA-Public Use
  Company Number: NL-MEDIMMUNE-MEDI-0013044

PATIENT
  Sex: Female
  Weight: 7.8 kg

DRUGS (1)
  1. SYNAGIS [Suspect]
     Route: 030
     Dates: start: 20100921, end: 20110308

REACTIONS (3)
  - PNEUMONIA [None]
  - COUGH [None]
  - PYREXIA [None]
